FAERS Safety Report 7868210 (Version 3)
Quarter: 2012Q4

REPORT INFORMATION
  Report Type: Report from Study
  Country: JP (occurrence: JP)
  Receive Date: 20110323
  Receipt Date: 20121123
  Transmission Date: 20130627
  Serious: Yes (Hospitalization, Disabling, Other)
  Sender: FDA-Public Use
  Company Number: PHHY2011JP21111

PATIENT
  Age: 43 Year
  Sex: Male

DRUGS (6)
  1. AFINITOR [Suspect]
     Indication: METASTATIC RENAL CELL CARCINOMA
     Dosage: 10 mg, daily
     Route: 048
     Dates: start: 20100701, end: 20101208
  2. AFINITOR [Suspect]
     Dosage: 10 mg, daily
     Route: 048
     Dates: start: 20110117
  3. MYSLEE [Concomitant]
     Dosage: 10 mg, UNK
     Route: 048
     Dates: start: 20100701, end: 20101216
  4. LOXOPROFEN [Concomitant]
     Dosage: 180 mg, UNK
     Dates: start: 20100708
  5. LOXOPROFEN [Concomitant]
     Dosage: 180 mg, UNK
     Route: 048
     Dates: end: 20110116
  6. NAIXAN [Concomitant]
     Indication: METASTATIC RENAL CELL CARCINOMA
     Dosage: 200 mg, UNK
     Route: 048
     Dates: start: 20110117

REACTIONS (7)
  - Hepatic function abnormal [Recovering/Resolving]
  - Blood alkaline phosphatase increased [Unknown]
  - Aspartate aminotransferase increased [Unknown]
  - Alanine aminotransferase increased [Unknown]
  - C-reactive protein increased [Unknown]
  - Blood lactate dehydrogenase increased [Unknown]
  - Haemoglobin decreased [Unknown]
